FAERS Safety Report 21176711 (Version 1)
Quarter: 2022Q3

REPORT INFORMATION
  Report Type: Other
  Country: US (occurrence: None)
  Receive Date: 20220805
  Receipt Date: 20220805
  Transmission Date: 20221027
  Serious: Yes (Hospitalization)
  Sender: FDA-Public Use
  Company Number: US-ROCHE-3148908

PATIENT
  Age: 47 Year
  Sex: Female

DRUGS (6)
  1. OCREVUS [Suspect]
     Active Substance: OCRELIZUMAB
     Indication: Multiple sclerosis
     Dosage: YES
     Route: 042
     Dates: start: 20211206
  2. OCREVUS [Suspect]
     Active Substance: OCRELIZUMAB
     Indication: Secondary progressive multiple sclerosis
  3. GILENYA [Concomitant]
     Active Substance: FINGOLIMOD HYDROCHLORIDE
  4. LORAZEPAM [Concomitant]
     Active Substance: LORAZEPAM
  5. TYLENOL [Concomitant]
     Active Substance: ACETAMINOPHEN
  6. AMPYRA [Concomitant]
     Active Substance: DALFAMPRIDINE

REACTIONS (5)
  - Fall [Unknown]
  - Burns second degree [Not Recovered/Not Resolved]
  - COVID-19 [Recovered/Resolved]
  - Vein collapse [Unknown]
  - Depression [Unknown]

NARRATIVE: CASE EVENT DATE: 20220625
